FAERS Safety Report 8803681 (Version 1)
Quarter: 2012Q4

REPORT INFORMATION
  Report Type: 
  Country: US (occurrence: US)
  Receive Date: 20120924
  Receipt Date: 20120924
  Transmission Date: 20130627
  Serious: Yes (Other)
  Sender: FDA-Public Use
  Company Number: US-JNJFOC-20120907871

PATIENT
  Age: 14 Year
  Sex: Male
  Weight: 114.5 kg

DRUGS (4)
  1. REMICADE [Suspect]
     Indication: CROHN^S DISEASE
     Route: 042
     Dates: start: 2012
  2. ANTIDEPRESSANTS [Suspect]
     Indication: PRODUCT USED FOR UNKNOWN INDICATION
     Route: 065
  3. FLUOXETINE [Concomitant]
     Indication: DEPRESSION
     Route: 065
     Dates: start: 2012
  4. OLANZAPINE [Concomitant]
     Indication: DEPRESSION
     Route: 065
     Dates: start: 2012

REACTIONS (1)
  - Weight increased [Unknown]
